FAERS Safety Report 16816018 (Version 2)
Quarter: 2019Q4

REPORT INFORMATION
  Report Type: Spontaneous
  Country: US (occurrence: US)
  Receive Date: 20190917
  Receipt Date: 20191004
  Transmission Date: 20200122
  Serious: No
  Sender: FDA-Public Use
  Company Number: US-KYOWAKIRIN-2019BKK014418

PATIENT

DRUGS (1)
  1. CRYSVITA [Suspect]
     Active Substance: BUROSUMAB-TWZA
     Indication: HEREDITARY HYPOPHOSPHATAEMIC RICKETS
     Dosage: UNKNOWN
     Route: 065
     Dates: start: 2019

REACTIONS (7)
  - Herpes virus infection [Unknown]
  - Nasopharyngitis [Unknown]
  - Toothache [Unknown]
  - Candida infection [Unknown]
  - Tooth extraction [Unknown]
  - Nail infection [Unknown]
  - Onychoclasis [Unknown]

NARRATIVE: CASE EVENT DATE: 2019
